FAERS Safety Report 10187064 (Version 1)
Quarter: 2014Q2

REPORT INFORMATION
  Report Type: Spontaneous
  Country: US (occurrence: None)
  Receive Date: 20140520
  Receipt Date: 20140520
  Transmission Date: 20141212
  Serious: Yes (Hospitalization)
  Sender: FDA-Public Use
  Company Number: None

PATIENT
  Age: 67 Year
  Sex: Male
  Weight: 101.8 kg

DRUGS (2)
  1. DABIGATRAN [Suspect]
     Indication: ATRIAL FIBRILLATION
     Route: 048
     Dates: start: 20140102, end: 20140311
  2. ASPIRIN [Suspect]
     Indication: CORONARY ARTERY DISEASE
     Route: 048
     Dates: end: 20140311

REACTIONS (4)
  - Melaena [None]
  - Renal failure acute [None]
  - Gastric haemorrhage [None]
  - International normalised ratio increased [None]
